FAERS Safety Report 15386700 (Version 1)
Quarter: 2018Q3

REPORT INFORMATION
  Report Type: Spontaneous
  Country: AM (occurrence: AM)
  Receive Date: 20180914
  Receipt Date: 20180914
  Transmission Date: 20181010
  Serious: Yes (Death, Other)
  Sender: FDA-Public Use
  Company Number: AM-AMGEN-ARMSP2018128124

PATIENT
  Age: 45 Year

DRUGS (1)
  1. BLINCYTO [Suspect]
     Active Substance: BLINATUMOMAB
     Indication: PRECURSOR B-LYMPHOBLASTIC LYMPHOMA REFRACTORY
     Dosage: 9 MUG, QD
     Route: 042

REACTIONS (3)
  - Cytokine release syndrome [Unknown]
  - Neurotoxicity [Unknown]
  - Death [Fatal]

NARRATIVE: CASE EVENT DATE: 2017
